FAERS Safety Report 11162689 (Version 1)
Quarter: 2015Q2

REPORT INFORMATION
  Report Type: Spontaneous
  Country: US (occurrence: None)
  Receive Date: 20150603
  Receipt Date: 20150603
  Transmission Date: 20150821
  Serious: Yes (Hospitalization)
  Sender: FDA-Public Use
  Company Number: None

PATIENT
  Age: 80 Year
  Sex: Female

DRUGS (1)
  1. AFINITOR [Suspect]
     Active Substance: EVEROLIMUS
     Indication: NEOPLASM MALIGNANT
     Route: 048
     Dates: start: 201504

REACTIONS (5)
  - Peripheral swelling [None]
  - Fatigue [None]
  - Decreased appetite [None]
  - Joint swelling [None]
  - Blood glucose increased [None]

NARRATIVE: CASE EVENT DATE: 20150514
